FAERS Safety Report 4297269-3 (Version None)
Quarter: 2004Q1

REPORT INFORMATION
  Report Type: 
  Country: None (occurrence: None)
  Receive Date: 20040213
  Receipt Date: 20040202
  Transmission Date: 20041129
  Serious: Yes (Hospitalization)
  Sender: FDA-Public Use
  Company Number: US-JNJFOC-20031000993

PATIENT
  Age: 76 Year
  Sex: Female
  Weight: 47.1741 kg

DRUGS (12)
  1. REMICADE [Suspect]
     Indication: RHEUMATOID ARTHRITIS
     Dosage: INTRAVENOUS
     Route: 042
     Dates: start: 20010402
  2. PERDNISONE (PREDNISONE) [Concomitant]
  3. ARAVA [Concomitant]
  4. FOLIC ACID [Concomitant]
  5. METHOTREXATE [Concomitant]
  6. GLUCOSAMINE (GLUCOSAMINE) [Concomitant]
  7. OSCAL (CALCIUM CAROBNATE) [Concomitant]
  8. HYDROCHLOROTHIAZIDE [Concomitant]
  9. MONOPRIL [Concomitant]
  10. ALBUTEROL [Concomitant]
  11. GUAFENESIN (GUAIFENESIN) [Concomitant]
  12. SLO MAG (MAGNESIUM CHLORIDE ANHYDROUS) [Concomitant]

REACTIONS (18)
  - ABDOMINAL INFECTION [None]
  - ANAEMIA [None]
  - ANAL HAEMORRHAGE [None]
  - ASTHENIA [None]
  - CEREBROVASCULAR ACCIDENT [None]
  - CHILLS [None]
  - CHOLECYSTITIS [None]
  - CHOLELITHIASIS [None]
  - DEHYDRATION [None]
  - DIARRHOEA [None]
  - DIVERTICULITIS [None]
  - HAEMATOCHEZIA [None]
  - HYPOTENSION [None]
  - LOWER GASTROINTESTINAL HAEMORRHAGE [None]
  - PRODUCTIVE COUGH [None]
  - PYREXIA [None]
  - VERTIGO [None]
  - VESTIBULAR DISORDER [None]
